FAERS Safety Report 5835034-3 (Version None)
Quarter: 2008Q3

REPORT INFORMATION
  Report Type: 
  Country: None (occurrence: None)
  Receive Date: 20080804
  Receipt Date: 20080722
  Transmission Date: 20090109
  Serious: Yes (Disabling)
  Sender: FDA-Public Use
  Company Number: 031292

PATIENT
  Age: 39 Year
  Sex: Female

DRUGS (1)
  1. ANTABUSE [Suspect]
     Indication: ALCOHOLIC
     Dosage: 200 MG/DAY, QHS,

REACTIONS (1)
  - STEREOTYPY [None]
